FAERS Safety Report 17570014 (Version 1)
Quarter: 2020Q1

REPORT INFORMATION
  Report Type: Spontaneous
  Country: US (occurrence: US)
  Receive Date: 20200323
  Receipt Date: 20200323
  Transmission Date: 20200409
  Serious: Yes (Other)
  Sender: FDA-Public Use
  Company Number: US-JNJFOC-20200320141

PATIENT
  Sex: Male
  Weight: 53.12 kg

DRUGS (1)
  1. CHILDRENS BENADRYL DYE-FREE ALLERGY [Suspect]
     Active Substance: DIPHENHYDRAMINE HYDROCHLORIDE
     Indication: URTICARIA
     Dosage: 10 ML ONCE A DAY
     Route: 048
     Dates: start: 20200304, end: 20200306

REACTIONS (3)
  - Hallucination [Recovered/Resolved]
  - Auditory disorder [Recovered/Resolved]
  - Insomnia [Recovered/Resolved]

NARRATIVE: CASE EVENT DATE: 20200306
